FAERS Safety Report 25053865 (Version 1)
Quarter: 2025Q1

REPORT INFORMATION
  Report Type: Spontaneous
  Country: US (occurrence: US)
  Receive Date: 20250307
  Receipt Date: 20250307
  Transmission Date: 20250408
  Serious: No
  Sender: SANOFI AVENTIS
  Company Number: US-SA-2025SA065893

PATIENT
  Sex: Male
  Weight: 84 kg

DRUGS (2)
  1. DUPIXENT [Suspect]
     Active Substance: DUPILUMAB
     Indication: Nasal polyps
     Dosage: 300.000MG QOW
     Route: 058
  2. DOXYCYCLINE [Concomitant]
     Active Substance: DOXYCYCLINE

REACTIONS (5)
  - Surgery [Unknown]
  - Anosmia [Recovered/Resolved]
  - Hypersensitivity [Unknown]
  - Cough [Unknown]
  - Inappropriate schedule of product administration [Unknown]
